FAERS Safety Report 19186340 (Version 2)
Quarter: 2021Q2

REPORT INFORMATION
  Report Type: Spontaneous
  Country: PL (occurrence: PL)
  Receive Date: 20210427
  Receipt Date: 20210510
  Transmission Date: 20210717
  Serious: Yes (Other)
  Sender: FDA-Public Use
  Company Number: PL-ELI_LILLY_AND_COMPANY-PL202104010125

PATIENT
  Age: 28 Year
  Sex: Male

DRUGS (2)
  1. OLANZAPINE. [Suspect]
     Active Substance: OLANZAPINE
     Dosage: 15 MG, DAILY
     Route: 065
  2. OLANZAPINE. [Suspect]
     Active Substance: OLANZAPINE
     Indication: SCHIZOPHRENIA
     Dosage: 20 MG, DAILY
     Route: 065

REACTIONS (7)
  - Gynaecomastia [Unknown]
  - Weight increased [Recovering/Resolving]
  - Metabolic syndrome [Unknown]
  - Hypercholesterolaemia [Unknown]
  - Obesity [Unknown]
  - Hypertension [Unknown]
  - Hypertriglyceridaemia [Unknown]
